FAERS Safety Report 5159302-6 (Version None)
Quarter: 2006Q4

REPORT INFORMATION
  Report Type: 
  Country: None (occurrence: None)
  Receive Date: 20061117
  Receipt Date: 20061113
  Transmission Date: 20070319
  Serious: Yes (Death)
  Sender: FDA-Public Use
  Company Number: AUWYE502413NOV06

PATIENT
  Age: 29 Year
  Sex: Male

DRUGS (2)
  1. EFFEXOR [Suspect]
  2. AURORIX (MOCLOBEMIDE, , 0) [Suspect]

REACTIONS (7)
  - DRUG ABUSER [None]
  - EYE DISORDER [None]
  - MALAISE [None]
  - PULSE ABSENT [None]
  - SELF-MEDICATION [None]
  - TOXICOLOGIC TEST ABNORMAL [None]
  - TREMOR [None]
